FAERS Safety Report 8621314-5 (Version None)
Quarter: 2012Q3

REPORT INFORMATION
  Report Type: 
  Country: None (occurrence: None)
  Receive Date: 20120824
  Receipt Date: 20120817
  Transmission Date: 20120928
  Serious: Yes (Hospitalization)
  Sender: FDA-Public Use
  Company Number: BR-PFIZER INC-2012203084

PATIENT
  Age: 57 Year
  Sex: Male

DRUGS (1)
  1. LATANOPROST [Suspect]
     Dosage: UNK, 1X/DAY
     Route: 047
     Dates: start: 20120218

REACTIONS (1)
  - EYE DISORDER [None]
